FAERS Safety Report 5090192-6 (Version None)
Quarter: 2006Q3

REPORT INFORMATION
  Report Type: 
  Country: None (occurrence: None)
  Receive Date: 20060828
  Receipt Date: 20060824
  Transmission Date: 20061208
  Serious: Yes (Other)
  Sender: FDA-Public Use
  Company Number: 2006S1003585

PATIENT
  Age: 56 Year
  Sex: Female

DRUGS (1)
  1. WELLBUTRIN SR [Suspect]
     Dosage: 100MG UNKNOWN

REACTIONS (1)
  - GRANULOCYTOPENIA [None]
